FAERS Safety Report 15241810 (Version 2)
Quarter: 2018Q3

REPORT INFORMATION
  Report Type: Spontaneous
  Country: BR (occurrence: BR)
  Receive Date: 20180805
  Receipt Date: 20180814
  Transmission Date: 20181010
  Serious: Yes (Other)
  Sender: FDA-Public Use
  Company Number: BR-BEH-2018093379

PATIENT
  Age: 48 Year
  Sex: Female
  Weight: 70 kg

DRUGS (19)
  1. PRIVIGEN [Suspect]
     Active Substance: HUMAN IMMUNOGLOBULIN G
     Dosage: 500 MG/KG, TOT
     Route: 042
     Dates: start: 20171006, end: 20171006
  2. PRIVIGEN [Suspect]
     Active Substance: HUMAN IMMUNOGLOBULIN G
     Dosage: 2000 MG/KG, QD
     Route: 042
     Dates: start: 20171218, end: 20171220
  3. PRIVIGEN [Suspect]
     Active Substance: HUMAN IMMUNOGLOBULIN G
     Dosage: 400 MG/KG, TOT
     Route: 042
     Dates: start: 20170504, end: 20170504
  4. PRIVIGEN [Suspect]
     Active Substance: HUMAN IMMUNOGLOBULIN G
     Dosage: 2000 MG/KG, QD
     Route: 042
     Dates: start: 20180115, end: 20180117
  5. PRIVIGEN [Suspect]
     Active Substance: HUMAN IMMUNOGLOBULIN G
     Indication: CHRONIC INFLAMMATORY DEMYELINATING POLYRADICULONEUROPATHY
     Dosage: 2 G/KG (LOADING DOSE); 400 MG/KG AND 500 MG/KG (MAINTENANCE DOSE)
     Route: 042
     Dates: start: 20170321, end: 201805
  6. PRIVIGEN [Suspect]
     Active Substance: HUMAN IMMUNOGLOBULIN G
     Dosage: 500 MG/KG, TOT
     Route: 042
     Dates: start: 20171127, end: 20171127
  7. PRIVIGEN [Suspect]
     Active Substance: HUMAN IMMUNOGLOBULIN G
     Dosage: 500 MG/KG, TOT
     Route: 042
     Dates: start: 20170717, end: 20170717
  8. PRIVIGEN [Suspect]
     Active Substance: HUMAN IMMUNOGLOBULIN G
     Dosage: 500 MG/KG, TOT
     Route: 042
     Dates: start: 20170803, end: 20170803
  9. PRIVIGEN [Suspect]
     Active Substance: HUMAN IMMUNOGLOBULIN G
     Dosage: 400 MG/KG, TOT
     Route: 042
     Dates: start: 20170905, end: 20170905
  10. PRIVIGEN [Suspect]
     Active Substance: HUMAN IMMUNOGLOBULIN G
     Dosage: 500 MG/KG, TOT
     Route: 042
     Dates: start: 20171023, end: 20171023
  11. PRIVIGEN [Suspect]
     Active Substance: HUMAN IMMUNOGLOBULIN G
     Dosage: 500 MG/KG, TOT
     Route: 042
     Dates: start: 20171109, end: 20171109
  12. PRIVIGEN [Suspect]
     Active Substance: HUMAN IMMUNOGLOBULIN G
     Dosage: 2000 MG/KG, QMT
     Route: 042
  13. PRIVIGEN [Suspect]
     Active Substance: HUMAN IMMUNOGLOBULIN G
     Dosage: 2000 MG/KG, QD
     Route: 042
     Dates: start: 20170612, end: 20170614
  14. PRIVIGEN [Suspect]
     Active Substance: HUMAN IMMUNOGLOBULIN G
     Dosage: 2000 MG/KG, QD
     Route: 042
     Dates: start: 20170321, end: 20170323
  15. PRIVIGEN [Suspect]
     Active Substance: HUMAN IMMUNOGLOBULIN G
     Dosage: 400 MG/KG, TOT
     Route: 042
     Dates: start: 20170413, end: 20170413
  16. PRIVIGEN [Suspect]
     Active Substance: HUMAN IMMUNOGLOBULIN G
     Dosage: 400 MG/KG, TOT
     Route: 042
     Dates: start: 20170519, end: 20170519
  17. PRIVIGEN [Suspect]
     Active Substance: HUMAN IMMUNOGLOBULIN G
     Dosage: 500 MG/KG, TOT
     Route: 042
     Dates: start: 20170629, end: 20170629
  18. PRIVIGEN [Suspect]
     Active Substance: HUMAN IMMUNOGLOBULIN G
     Dosage: 400 MG/KG, TOT
     Route: 042
     Dates: start: 20170821, end: 20170821
  19. PRIVIGEN [Suspect]
     Active Substance: HUMAN IMMUNOGLOBULIN G
     Dosage: 400 MG/KG, TOT
     Route: 042
     Dates: start: 20170922, end: 20170922

REACTIONS (9)
  - Chronic inflammatory demyelinating polyradiculoneuropathy [Unknown]
  - Pain in extremity [Unknown]
  - Drug ineffective [Unknown]
  - Hypoaesthesia [Unknown]
  - Chronic inflammatory demyelinating polyradiculoneuropathy [Recovered/Resolved]
  - Chronic inflammatory demyelinating polyradiculoneuropathy [Unknown]
  - Headache [Unknown]
  - Chronic inflammatory demyelinating polyradiculoneuropathy [Recovered/Resolved]
  - Hyporeflexia [Unknown]

NARRATIVE: CASE EVENT DATE: 20170519
